FAERS Safety Report 8254851-6 (Version None)
Quarter: 2012Q2

REPORT INFORMATION
  Report Type: 
  Country: None (occurrence: None)
  Receive Date: 20120403
  Receipt Date: 20120330
  Transmission Date: 20120825
  Serious: Yes (Death)
  Sender: FDA-Public Use
  Company Number: PHHO2011PL08779

PATIENT
  Sex: Male
  Weight: 82 kg

DRUGS (1)
  1. EVEROLIMUS [Suspect]
     Indication: METASTATIC RENAL CELL CARCINOMA
     Dosage: 10 MG,
     Route: 048
     Dates: start: 20100312, end: 20110521

REACTIONS (2)
  - CARDIAC ARREST [None]
  - NEOPLASM PROGRESSION [None]
